FAERS Safety Report 13622448 (Version 1)
Quarter: 2017Q2

REPORT INFORMATION
  Report Type: Spontaneous
  Country: US (occurrence: US)
  Receive Date: 20170607
  Receipt Date: 20170607
  Transmission Date: 20170830
  Serious: No
  Sender: FDA-Public Use
  Company Number: US-ROCHE-1183700

PATIENT
  Sex: Male

DRUGS (1)
  1. FUZEON [Suspect]
     Active Substance: ENFUVIRTIDE
     Indication: HIV INFECTION
     Route: 065

REACTIONS (5)
  - Injection site pain [Unknown]
  - Malaise [Unknown]
  - Needle issue [Unknown]
  - Product quality issue [Unknown]
  - Injection site reaction [Unknown]
